FAERS Safety Report 20928625 (Version 1)
Quarter: 2022Q2

REPORT INFORMATION
  Report Type: Spontaneous
  Country: IQ (occurrence: IQ)
  Receive Date: 20220607
  Receipt Date: 20220607
  Transmission Date: 20220720
  Serious: Yes (Death, Hospitalization, Disabling, Other)
  Sender: FDA-Public Use
  Company Number: IQ-SA-SAC20220420001396

PATIENT
  Age: 1 Year
  Sex: Male
  Weight: 9.8 kg

DRUGS (1)
  1. MYOZYME [Suspect]
     Active Substance: ALGLUCOSIDASE ALFA
     Indication: Glycogen storage disease type II
     Dosage: UNK
     Route: 065

REACTIONS (3)
  - Death [Fatal]
  - Infection [Unknown]
  - Disability [Unknown]

NARRATIVE: CASE EVENT DATE: 20220419
